FAERS Safety Report 8382291-8 (Version None)
Quarter: 2012Q2

REPORT INFORMATION
  Report Type: 
  Country: None (occurrence: None)
  Receive Date: 20120524
  Receipt Date: 20120519
  Transmission Date: 20120825
  Serious: No
  Sender: FDA-Public Use
  Company Number: US-PFIZER INC-2012121526

PATIENT
  Age: 76 Year
  Sex: Female

DRUGS (5)
  1. LORAZEPAM [Suspect]
     Indication: ANXIETY
     Dosage: 0.05 MG, DAILY
  2. VERAPAMIL HCL [Suspect]
     Indication: HYPERTENSION
     Dosage: UNK,DAILY
  3. CITALOPRAM HYDROBROMIDE [Suspect]
     Indication: DEPRESSION
     Dosage: 40 MG, DAILY
  4. ADVIL [Suspect]
     Indication: JOINT INJURY
     Dosage: 6 DF, DAILY
     Route: 048
     Dates: start: 20120501
  5. DIOVAN [Suspect]
     Indication: HYPERTENSION
     Dosage: UNK,DAILY

REACTIONS (4)
  - ABDOMINAL PAIN UPPER [None]
  - NAUSEA [None]
  - ANXIETY [None]
  - DEPRESSION [None]
